FAERS Safety Report 4293502-2 (Version None)
Quarter: 2004Q1

REPORT INFORMATION
  Report Type: 
  Country: None (occurrence: None)
  Receive Date: 20040210
  Receipt Date: 20040115
  Transmission Date: 20041129
  Serious: Yes (Life-Threatening, Hospitalization)
  Sender: FDA-Public Use
  Company Number: D01200400137

PATIENT
  Age: 68 Year
  Sex: Male

DRUGS (4)
  1. FONDAPARINUX - SOLUTION [Suspect]
     Indication: MYOCARDIAL INFARCTION
     Dosage: 2.5 MG QD, SUBCUTANEOUS
     Route: 058
     Dates: start: 20040108, end: 20040112
  2. ASPIRIN [Concomitant]
  3. LOW MOLECULAR WEIGHT HEPARIN (HEPARIN-FRACTION) [Concomitant]
  4. CYCLOKAPRON (TRANEXAMIC ACID) [Concomitant]

REACTIONS (4)
  - CARDIOGENIC SHOCK [None]
  - GRAFT THROMBOSIS [None]
  - SURGICAL PROCEDURE REPEATED [None]
  - WOUND HAEMORRHAGE [None]
